FAERS Safety Report 6705802-4 (Version None)
Quarter: 2010Q2

REPORT INFORMATION
  Report Type: 
  Country: None (occurrence: None)
  Receive Date: 20100503
  Receipt Date: 20100427
  Transmission Date: 20101027
  Serious: Yes (Life-Threatening)
  Sender: FDA-Public Use
  Company Number: GB-JNJFOC-20100307259

PATIENT
  Sex: Male
  Weight: 2.5 kg

DRUGS (1)
  1. ACETAMINOPHEN AND CODEINE PHOSPHATE [Suspect]
     Indication: DRUG EXPOSURE DURING PREGNANCY
     Route: 064

REACTIONS (17)
  - BLOOD GLUCOSE DECREASED [None]
  - CONVULSION NEONATAL [None]
  - CRYING [None]
  - DIARRHOEA NEONATAL [None]
  - DRUG WITHDRAWAL SYNDROME NEONATAL [None]
  - FEELING JITTERY [None]
  - GRUNTING [None]
  - HEART RATE DECREASED [None]
  - HYPERTONIA NEONATAL [None]
  - INFANTILE APNOEIC ATTACK [None]
  - IRRITABILITY [None]
  - NEONATAL ASPIRATION [None]
  - NEONATAL TACHYPNOEA [None]
  - OXYGEN SATURATION DECREASED [None]
  - PYREXIA [None]
  - RESTLESSNESS [None]
  - TREMOR NEONATAL [None]
